FAERS Safety Report 17159712 (Version 1)
Quarter: 2019Q4

REPORT INFORMATION
  Report Type: Spontaneous
  Country: KR (occurrence: KR)
  Receive Date: 20191216
  Receipt Date: 20191216
  Transmission Date: 20200122
  Serious: Yes (Death)
  Sender: FDA-Public Use
  Company Number: KR-ABBVIE-19K-090-2978934-00

PATIENT
  Age: 69 Year
  Sex: Female

DRUGS (1)
  1. VENETOCLAX. [Suspect]
     Active Substance: VENETOCLAX
     Indication: ACUTE MYELOID LEUKAEMIA
     Route: 048
     Dates: start: 20191031

REACTIONS (2)
  - Acute myeloid leukaemia recurrent [Fatal]
  - Off label use [Unknown]

NARRATIVE: CASE EVENT DATE: 2019
